FAERS Safety Report 9782832 (Version 1)
Quarter: 2013Q4

REPORT INFORMATION
  Report Type: Spontaneous
  Country: US (occurrence: US)
  Receive Date: 20131226
  Receipt Date: 20131226
  Transmission Date: 20140711
  Serious: No
  Sender: FDA-Public Use
  Company Number: US-ABBVIE-13P-163-1116525-00

PATIENT
  Age: 78 Year
  Sex: Male
  Weight: 106.69 kg

DRUGS (6)
  1. LUPRON DEPOT [Suspect]
     Indication: PROSTATE CANCER
     Dates: start: 20130617
  2. COUMADIN [Concomitant]
     Indication: ANTICOAGULANT THERAPY
  3. NOVOLOG MIX [Concomitant]
     Indication: DIABETES MELLITUS
     Dosage: 70/30
  4. DIOVAN [Concomitant]
     Indication: PRODUCT USED FOR UNKNOWN INDICATION
  5. FLECAINIDE [Concomitant]
     Indication: ARRHYTHMIA
  6. ZOCOR [Concomitant]
     Indication: BLOOD CHOLESTEROL INCREASED

REACTIONS (2)
  - Vertigo [Not Recovered/Not Resolved]
  - Hot flush [Not Recovered/Not Resolved]
